FAERS Safety Report 12763317 (Version 1)
Quarter: 2016Q3

REPORT INFORMATION
  Report Type: Report from Study
  Country: CA (occurrence: CA)
  Receive Date: 20160920
  Receipt Date: 20160920
  Transmission Date: 20161109
  Serious: Yes (Other)
  Sender: FDA-Public Use
  Company Number: PHHY2016CA128035

PATIENT
  Age: 39 Year
  Sex: Female

DRUGS (2)
  1. EXJADE [Suspect]
     Active Substance: DEFERASIROX
     Indication: THALASSAEMIA BETA
     Dosage: 2000 MG, QD
     Route: 048
     Dates: start: 201503, end: 201503
  2. EXJADE [Suspect]
     Active Substance: DEFERASIROX
     Indication: IRON OVERLOAD

REACTIONS (19)
  - Hepatosplenomegaly [Unknown]
  - Gastrointestinal disorder [Unknown]
  - Mitral valve incompetence [Unknown]
  - Hepatic lesion [Unknown]
  - Left atrial enlargement [Unknown]
  - Mitral valve disease [Unknown]
  - Extramedullary haemopoiesis [Unknown]
  - Vertebral lesion [Unknown]
  - Polychromasia [Unknown]
  - Tricuspid valve incompetence [Unknown]
  - Right atrial enlargement [Unknown]
  - Mass [Unknown]
  - Liver iron concentration increased [Unknown]
  - Hypochromasia [Unknown]
  - Red blood cell microcytes [Unknown]
  - Elliptocytosis [Unknown]
  - Platelet count decreased [Unknown]
  - Spleen disorder [Unknown]
  - Red cell distribution width increased [Unknown]

NARRATIVE: CASE EVENT DATE: 20160113
